FAERS Safety Report 4647702-X (Version None)
Quarter: 2005Q2

REPORT INFORMATION
  Report Type: 
  Country: None (occurrence: None)
  Receive Date: 20050427
  Receipt Date: 20050427
  Transmission Date: 20051028
  Serious: Yes (Other)
  Sender: FDA-Public Use
  Company Number: None

PATIENT
  Sex: Male
  Weight: 66 kg

DRUGS (1)
  1. FORTAZ [Suspect]
     Indication: ARTHRITIS INFECTIVE
     Dosage: 2G IV Q 8 HRS
     Route: 042
     Dates: start: 20050403, end: 20050425

REACTIONS (2)
  - RASH GENERALISED [None]
  - URTICARIA [None]
